FAERS Safety Report 8818961 (Version 6)
Quarter: 2014Q3

REPORT INFORMATION
  Report Type: Report from Study
  Country: CA (occurrence: CA)
  Receive Date: 20121001
  Receipt Date: 20140908
  Transmission Date: 20150326
  Serious: Yes (Death, Hospitalization, Other)
  Sender: FDA-Public Use
  Company Number: PHHY2011CA103285

PATIENT
  Age: 65 Year
  Sex: Female

DRUGS (3)
  1. SANDOSTATIN LAR DEPOT [Suspect]
     Active Substance: OCTREOTIDE ACETATE
     Indication: NEUROENDOCRINE TUMOUR
     Dosage: 50 MG, EVERY THREE WEEKS
     Route: 030
     Dates: start: 20111129
  2. SANDOSTATIN [Suspect]
     Active Substance: OCTREOTIDE ACETATE
     Indication: NEUROENDOCRINE TUMOUR
     Dosage: TEST DOSE
     Route: 058
     Dates: start: 20111118
  3. SANDOSTATIN LAR DEPOT [Suspect]
     Active Substance: OCTREOTIDE ACETATE
     Dosage: 60 MG, EVERY THREE WEEKS
     Route: 030
     Dates: end: 20140814

REACTIONS (14)
  - Fall [Unknown]
  - Skin atrophy [Not Recovered/Not Resolved]
  - Feeling abnormal [Unknown]
  - Death [Fatal]
  - Ascites [Unknown]
  - Blood pressure diastolic decreased [Unknown]
  - Oedema [Unknown]
  - Abdominal discomfort [Unknown]
  - Faeces pale [Unknown]
  - Clostridium difficile infection [Unknown]
  - Flushing [Recovering/Resolving]
  - Swelling [Unknown]
  - Fatigue [Unknown]
  - Diarrhoea [Recovering/Resolving]

NARRATIVE: CASE EVENT DATE: 201408
